FAERS Safety Report 9646541 (Version 2)
Quarter: 2013Q4

REPORT INFORMATION
  Report Type: Report from Study
  Country: VE (occurrence: VE)
  Receive Date: 20131025
  Receipt Date: 20131223
  Transmission Date: 20140711
  Serious: Yes (Hospitalization)
  Sender: FDA-Public Use
  Company Number: VE-ROCHE-1294639

PATIENT
  Age: 60 Year
  Sex: Female

DRUGS (6)
  1. XOLAIR [Suspect]
     Indication: ASTHMA
     Dosage: LAST DOSE ON 17 OCT 2013
     Route: 058
     Dates: start: 20130328
  2. XOLAIR [Suspect]
     Route: 058
     Dates: start: 201306, end: 201306
  3. XOLAIR [Suspect]
     Route: 065
     Dates: start: 201307, end: 201307
  4. XOLAIR [Suspect]
     Route: 065
     Dates: start: 201308, end: 201312
  5. SPIRIVA [Concomitant]
     Route: 065
     Dates: start: 2012
  6. VANNAIR [Concomitant]
     Route: 065
     Dates: start: 2012, end: 201307

REACTIONS (5)
  - Bronchitis [Recovered/Resolved]
  - Dyspnoea [Recovering/Resolving]
  - Blood triglycerides increased [Recovering/Resolving]
  - Blood cholesterol increased [Recovering/Resolving]
  - Off label use [Unknown]
